FAERS Safety Report 25258644 (Version 1)
Quarter: 2025Q2

REPORT INFORMATION
  Report Type: Spontaneous
  Country: CN (occurrence: CN)
  Receive Date: 20250501
  Receipt Date: 20250501
  Transmission Date: 20250716
  Serious: Yes (Other)
  Sender: ROCHE
  Company Number: CN-ROCHE-10000265267

PATIENT
  Age: 69 Year
  Sex: Male

DRUGS (10)
  1. GLOFITAMAB [Suspect]
     Active Substance: GLOFITAMAB
     Indication: Diffuse large B-cell lymphoma
     Route: 065
     Dates: start: 20241128
  2. GLOFITAMAB [Suspect]
     Active Substance: GLOFITAMAB
     Route: 065
     Dates: start: 20241205
  3. GLOFITAMAB [Suspect]
     Active Substance: GLOFITAMAB
     Route: 065
     Dates: start: 20250103
  4. OBINUTUZUMAB [Suspect]
     Active Substance: OBINUTUZUMAB
     Indication: Diffuse large B-cell lymphoma
     Route: 065
     Dates: start: 20241121
  5. POLATUZUMAB VEDOTIN [Suspect]
     Active Substance: POLATUZUMAB VEDOTIN
     Indication: Diffuse large B-cell lymphoma
     Route: 065
     Dates: start: 20240825
  6. ZUBERITAMAB [Concomitant]
     Active Substance: ZUBERITAMAB
     Dates: start: 20240825
  7. CYCLOPHOSPHAMIDE [Concomitant]
     Active Substance: CYCLOPHOSPHAMIDE
     Dates: start: 20240825
  8. PIRARUBICIN [Concomitant]
     Active Substance: PIRARUBICIN
     Dates: start: 20240825
  9. METHYLPREDNISOLONE [Concomitant]
     Active Substance: METHYLPREDNISOLONE
     Dates: start: 20240825
  10. LENALIDOMIDE [Concomitant]
     Active Substance: LENALIDOMIDE

REACTIONS (3)
  - Cytokine release syndrome [Unknown]
  - Disease progression [Unknown]
  - Immune effector cell-associated neurotoxicity syndrome [Unknown]
